FAERS Safety Report 15752550 (Version 1)
Quarter: 2018Q4

REPORT INFORMATION
  Report Type: Spontaneous
  Country: US (occurrence: US)
  Receive Date: 20181221
  Receipt Date: 20181221
  Transmission Date: 20190205
  Serious: Yes (Death, Other)
  Sender: FDA-Public Use
  Company Number: US-SEATTLE GENETICS-2018SGN03343

PATIENT

DRUGS (1)
  1. ADCETRIS [Suspect]
     Active Substance: BRENTUXIMAB VEDOTIN
     Indication: PRODUCT USED FOR UNKNOWN INDICATION
     Route: 065

REACTIONS (8)
  - Speech disorder [Unknown]
  - Hemiparesis [Unknown]
  - Coordination abnormal [Unknown]
  - Confusional state [Unknown]
  - Death [Fatal]
  - Mental status changes [Unknown]
  - Asthenia [Unknown]
  - Progressive multifocal leukoencephalopathy [Unknown]
